FAERS Safety Report 6348519-0 (Version None)
Quarter: 2009Q3

REPORT INFORMATION
  Report Type: 
  Country: None (occurrence: None)
  Receive Date: 20090911
  Receipt Date: 20070607
  Transmission Date: 20100115
  Serious: Yes (Other)
  Sender: FDA-Public Use
  Company Number: US-ASTRAZENECA-2006UW22392

PATIENT
  Age: 72 Year
  Sex: Male
  Weight: 70.8 kg

DRUGS (12)
  1. SEROQUEL [Suspect]
     Indication: HEADACHE
     Dosage: 25-900 MG
     Route: 048
     Dates: start: 20040611, end: 20060420
  2. SEROQUEL [Suspect]
     Indication: PSYCHOTIC DISORDER
     Dosage: 25-900 MG
     Route: 048
     Dates: start: 20040611, end: 20060420
  3. SEROQUEL [Suspect]
     Indication: DEMENTIA
     Dosage: 25-900 MG
     Route: 048
     Dates: start: 20040611, end: 20060420
  4. SEROQUEL [Suspect]
     Indication: SLEEP DISORDER
     Dosage: 25-900 MG
     Route: 048
     Dates: start: 20040611, end: 20060420
  5. SEROQUEL [Suspect]
     Indication: AGITATION
     Dosage: 25-900 MG
     Route: 048
     Dates: start: 20040611, end: 20060420
  6. SEROQUEL [Suspect]
     Indication: IRRITABILITY
     Dosage: 25-900 MG
     Route: 048
     Dates: start: 20040611, end: 20060420
  7. ASPIRIN [Concomitant]
     Indication: ARTHRITIS
     Dosage: 81-1000 MG
     Route: 048
     Dates: start: 20050216
  8. TRAZODONE HCL [Concomitant]
     Indication: SLEEP DISORDER
     Route: 048
     Dates: start: 20041215
  9. TRAZODONE HCL [Concomitant]
     Indication: DEPRESSION
     Route: 048
     Dates: start: 20041215
  10. PERCOCET [Concomitant]
     Indication: PAIN
     Dosage: 5/325 1 OR 2 EVERY 4-6 HOURS
     Route: 048
     Dates: start: 20041215
  11. FLEXERIL [Concomitant]
     Indication: MUSCLE SPASMS
     Route: 048
     Dates: start: 20041215
  12. PHENOBARBITAL [Concomitant]
     Indication: CONVULSION
     Dosage: 64.8 - 194.4 MG
     Route: 048
     Dates: start: 20010101

REACTIONS (4)
  - DIABETES MELLITUS [None]
  - DIABETES MELLITUS INADEQUATE CONTROL [None]
  - NEUROPATHY PERIPHERAL [None]
  - TYPE 2 DIABETES MELLITUS [None]
